FAERS Safety Report 7605321-7 (Version None)
Quarter: 2011Q3

REPORT INFORMATION
  Report Type: 
  Country: None (occurrence: None)
  Receive Date: 20110705
  Receipt Date: 20110622
  Transmission Date: 20111222
  Serious: Yes (Hospitalization)
  Sender: FDA-Public Use
  Company Number: 1000021797

PATIENT
  Age: 24 Year
  Sex: Male
  Weight: 59 kg

DRUGS (5)
  1. CITALOPRAM HYDROBROMIDE [Suspect]
     Indication: DEPRESSION
     Dosage: 40 MG (40 MG,1 IN 1 D),ORAL
     Route: 048
     Dates: end: 20110510
  2. CODEINE POHSPHATE (CODEINE PHOSPHATE) (CODEINE PHOSPHATE) [Concomitant]
  3. FERROUS FUMARATE (FERROUS FUMARATE) (FERROUS FUMARATE) [Concomitant]
  4. TEMAZEPAM [Concomitant]
  5. FOLIC ACID [Concomitant]

REACTIONS (2)
  - DUODENAL PERFORATION [None]
  - DUODENAL ULCER [None]
